FAERS Safety Report 23659679 (Version 1)
Quarter: 2024Q1

REPORT INFORMATION
  Report Type: Spontaneous
  Country: FR (occurrence: FR)
  Receive Date: 20240321
  Receipt Date: 20240321
  Transmission Date: 20240409
  Serious: Yes (Hospitalization)
  Sender: FDA-Public Use
  Company Number: None

PATIENT
  Age: 91 Year
  Sex: Female
  Weight: 60 kg

DRUGS (2)
  1. FONDAPARINUX [Suspect]
     Active Substance: FONDAPARINUX
     Indication: Deep vein thrombosis
     Dosage: 5 MILLIGRAM, QD
     Route: 058
     Dates: start: 20240120, end: 20240201
  2. ENOXAPARIN [Suspect]
     Active Substance: ENOXAPARIN
     Indication: Deep vein thrombosis
     Dosage: 4000 INTERNATIONAL UNIT, BID
     Route: 058
     Dates: start: 20240109, end: 20240116

REACTIONS (1)
  - Bullous haemorrhagic dermatosis [Recovering/Resolving]

NARRATIVE: CASE EVENT DATE: 20240115
